FAERS Safety Report 8877641 (Version 1)
Quarter: 2012Q4

REPORT INFORMATION
  Report Type: Spontaneous
  Country: US (occurrence: None)
  Receive Date: 20121031
  Receipt Date: 20121031
  Transmission Date: 20130627
  Serious: No
  Sender: FDA-Public Use
  Company Number: None

PATIENT
  Sex: Female

DRUGS (2)
  1. LAMOTRIGINE [Suspect]
     Route: 048
     Dates: start: 20120920, end: 20121025
  2. LAMOTRIGINE [Suspect]
     Indication: ALTERED MOOD
     Route: 048
     Dates: start: 20120920, end: 20121025

REACTIONS (2)
  - Drug effect decreased [None]
  - Product substitution issue [None]
